FAERS Safety Report 14726294 (Version 1)
Quarter: 2018Q2

REPORT INFORMATION
  Report Type: Spontaneous
  Country: ES (occurrence: ES)
  Receive Date: 20180406
  Receipt Date: 20180406
  Transmission Date: 20180711
  Serious: Yes (Other)
  Sender: FDA-Public Use
  Company Number: ES-BRISTOL-MYERS SQUIBB COMPANY-BMS-2018-030069

PATIENT
  Age: 56 Year
  Sex: Female
  Weight: 83 kg

DRUGS (1)
  1. NIVOLUMAB [Suspect]
     Active Substance: NIVOLUMAB
     Indication: RENAL CANCER
     Dosage: 249 MG, 15 DAY INTERVAL
     Route: 042
     Dates: start: 20180214, end: 20180314

REACTIONS (3)
  - Hypoxia [Recovered/Resolved]
  - Bronchospasm [Recovered/Resolved]
  - Erythema [Recovered/Resolved]

NARRATIVE: CASE EVENT DATE: 20180314
